FAERS Safety Report 5094680-8 (Version None)
Quarter: 2006Q3

REPORT INFORMATION
  Report Type: 
  Country: None (occurrence: None)
  Receive Date: 20060830
  Receipt Date: 20060815
  Transmission Date: 20061208
  Serious: Yes (Death, Hospitalization)
  Sender: FDA-Public Use
  Company Number: US200607000756

PATIENT
  Age: 80 Year
  Sex: Female
  Weight: 61.2 kg

DRUGS (1)
  1. ZYPREXA [Suspect]
     Indication: DEMENTIA
     Dosage: 10 MG
     Dates: start: 19980901, end: 20000501

REACTIONS (5)
  - DIABETES MELLITUS [None]
  - GLYCOSURIA [None]
  - HYPERGLYCAEMIA [None]
  - INSULIN RESISTANCE [None]
  - METABOLIC DISORDER [None]
